FAERS Safety Report 8140094-3 (Version None)
Quarter: 2012Q1

REPORT INFORMATION
  Report Type: 
  Country: None (occurrence: None)
  Receive Date: 20120216
  Receipt Date: 20120206
  Transmission Date: 20120608
  Serious: Yes (Hospitalization)
  Sender: FDA-Public Use
  Company Number: GB-BRISTOL-MYERS SQUIBB COMPANY-16385056

PATIENT
  Age: 61 Year
  Sex: Female

DRUGS (6)
  1. FLUOXETINE [Suspect]
  2. ROSUVASTATIN [Concomitant]
  3. RAMIPRIL [Concomitant]
  4. OMEPRAZOLE [Concomitant]
  5. BENDROFLUMETHIAZIDE [Suspect]
  6. MEBEVERINE [Concomitant]

REACTIONS (3)
  - HYPONATRAEMIA [None]
  - VOMITING [None]
  - DIARRHOEA [None]
